FAERS Safety Report 8609102-7 (Version None)
Quarter: 2012Q3

REPORT INFORMATION
  Report Type: 
  Country: None (occurrence: None)
  Receive Date: 20120821
  Receipt Date: 20120809
  Transmission Date: 20120928
  Serious: Yes (Other)
  Sender: FDA-Public Use
  Company Number: SE-ELI_LILLY_AND_COMPANY-SE201205005570

PATIENT
  Sex: Male
  Weight: 50 kg

DRUGS (2)
  1. STRATTERA [Suspect]
     Indication: ATTENTION DEFICIT/HYPERACTIVITY DISORDER
     Dosage: 60 MG, UNKNOWN
  2. FLUOXETINE HCL [Concomitant]
     Dosage: UNK

REACTIONS (2)
  - SYNCOPE [None]
  - POTENTIATING DRUG INTERACTION [None]
